FAERS Safety Report 21573188 (Version 1)
Quarter: 2022Q4

REPORT INFORMATION
  Report Type: Spontaneous
  Country: SE (occurrence: SE)
  Receive Date: 20221109
  Receipt Date: 20221109
  Transmission Date: 20230112
  Serious: Yes (Other)
  Sender: FDA-Public Use
  Company Number: SE-Covis Pharma Europe B.V.-2022COV22328

PATIENT
  Sex: Male

DRUGS (1)
  1. ALVESCO [Suspect]
     Active Substance: CICLESONIDE
     Indication: Chronic obstructive pulmonary disease
     Dosage: UNKNOWN
     Route: 065

REACTIONS (4)
  - Laryngeal neoplasm [Unknown]
  - Tracheostomy [Unknown]
  - Condition aggravated [Unknown]
  - Off label use [Unknown]
